FAERS Safety Report 6039684-3 (Version None)
Quarter: 2009Q1

REPORT INFORMATION
  Report Type: 
  Country: None (occurrence: None)
  Receive Date: 20090116
  Receipt Date: 20080221
  Transmission Date: 20090719
  Serious: Yes (Hospitalization)
  Sender: FDA-Public Use
  Company Number: US-KINGPHARMUSA00001-K200800235

PATIENT
  Age: 50 Year
  Sex: Female

DRUGS (1)
  1. CORGARD [Suspect]
     Indication: MITRAL VALVE PROLAPSE
     Dosage: 20 MG QD
     Route: 048
     Dates: start: 19780101

REACTIONS (3)
  - DRUG INEFFECTIVE [None]
  - HEART RATE IRREGULAR [None]
  - THERAPEUTIC RESPONSE UNEXPECTED WITH DRUG SUBSTITUTION [None]
